FAERS Safety Report 9741527 (Version 2)
Quarter: 2014Q1

REPORT INFORMATION
  Report Type: Report from Study
  Country: BR (occurrence: BR)
  Receive Date: 20131210
  Receipt Date: 20140131
  Transmission Date: 20141002
  Serious: Yes (Other)
  Sender: FDA-Public Use
  Company Number: BR-ROCHE-1316603

PATIENT
  Sex: Female
  Weight: 56.3 kg

DRUGS (2)
  1. INTERFERON ALFA-2A [Suspect]
     Indication: HEPATITIS C
     Route: 065
     Dates: start: 2007, end: 2008
  2. RIBAVIRIN [Suspect]
     Indication: HEPATITIS C
     Route: 065
     Dates: start: 2007, end: 2008

REACTIONS (6)
  - Drug ineffective [Unknown]
  - Hypothyroidism [Not Recovered/Not Resolved]
  - Nervousness [Unknown]
  - Blood glucose increased [Not Recovered/Not Resolved]
  - Agitation [Unknown]
  - Malaise [Unknown]
